FAERS Safety Report 6144434-6 (Version None)
Quarter: 2009Q2

REPORT INFORMATION
  Report Type: 
  Country: None (occurrence: None)
  Receive Date: 20090406
  Receipt Date: 20090327
  Transmission Date: 20091009
  Serious: Yes (Hospitalization)
  Sender: FDA-Public Use
  Company Number: PR-ABBOTT-09P-131-0565011-00

PATIENT
  Sex: Female
  Weight: 72.186 kg

DRUGS (6)
  1. HUMIRA [Suspect]
     Indication: CROHN'S DISEASE
     Dosage: 4 PENS FIRST DAY
     Route: 058
     Dates: start: 20090313
  2. INSULIN [Concomitant]
     Indication: DIABETES MELLITUS
     Route: 058
  3. AZULFIDINE EN-TABS [Concomitant]
     Indication: CROHN'S DISEASE
     Route: 048
  4. PREDNISONE [Concomitant]
     Indication: CROHN'S DISEASE
     Route: 048
  5. PENTASA [Concomitant]
     Indication: CROHN'S DISEASE
     Route: 051
  6. HYDROCHLOROTHIAZIDE [Concomitant]
     Indication: HYPERTENSION
     Dosage: 1 TABLET IN THE AM
     Route: 048

REACTIONS (3)
  - BLOOD POTASSIUM DECREASED [None]
  - BRONCHITIS [None]
  - DIABETES MELLITUS INADEQUATE CONTROL [None]
